FAERS Safety Report 9563204 (Version 2)
Quarter: 2013Q3

REPORT INFORMATION
  Report Type: Spontaneous
  Country: US (occurrence: US)
  Receive Date: 20130927
  Receipt Date: 20130927
  Transmission Date: 20140515
  Serious: No
  Sender: FDA-Public Use
  Company Number: US-BRISTOL-MYERS SQUIBB COMPANY-19009331

PATIENT
  Age: 67 Year
  Sex: Female
  Weight: 106.57 kg

DRUGS (7)
  1. ONGLYZA TABS 5 MG [Suspect]
     Indication: DIABETES MELLITUS
     Dosage: BATCH NO:2G6070A
  2. LEVOTHYROXINE [Concomitant]
  3. TRIAMTERENE [Concomitant]
  4. CRESTOR [Concomitant]
  5. ECOTRIN [Concomitant]
  6. ALLEGRA [Concomitant]
  7. CYCLOBENZAPRINE [Concomitant]

REACTIONS (1)
  - Drug ineffective [Unknown]
